FAERS Safety Report 10595191 (Version 1)
Quarter: 2014Q4

REPORT INFORMATION
  Report Type: Spontaneous
  Country: AU (occurrence: None)
  Receive Date: 20141118
  Receipt Date: 20141118
  Transmission Date: 20150529
  Serious: Yes (Life-Threatening, Hospitalization)
  Sender: FDA-Public Use
  Company Number: IPC201411-000601

PATIENT
  Age: 51 Year
  Sex: Female

DRUGS (5)
  1. PANTOPRAZOLE [Concomitant]
     Active Substance: PANTOPRAZOLE SODIUM
  2. ALLOPURINOL. [Suspect]
     Active Substance: ALLOPURINOL
  3. PERINDOPRIL (PERINDOPRIL) (PERINDOPRIL) [Concomitant]
  4. VITAMIN D (VITAMIN D) (VITAMIN D) [Concomitant]
  5. ERYTHROMYCIN (ERYTHROMYCIN) (ERYTHROMYCIN) [Concomitant]

REACTIONS (10)
  - Renal tubular necrosis [None]
  - Pneumonitis [None]
  - Septic shock [None]
  - Nephropathy toxic [None]
  - Anaemia [None]
  - Drug reaction with eosinophilia and systemic symptoms [None]
  - Thrombocytopenia [None]
  - Disseminated intravascular coagulation [None]
  - Pleural effusion [None]
  - Myocarditis [None]
